FAERS Safety Report 9335404 (Version 2)
Quarter: 2013Q3

REPORT INFORMATION
  Report Type: Spontaneous
  Country: FR (occurrence: FR)
  Receive Date: 20130606
  Receipt Date: 20130808
  Transmission Date: 20140515
  Serious: Yes (Hospitalization)
  Sender: FDA-Public Use
  Company Number: FR-ROCHE-1233482

PATIENT
  Age: 81 Year
  Sex: Male

DRUGS (3)
  1. ROCEPHINE [Suspect]
     Indication: URINARY TRACT INFECTION
     Route: 042
     Dates: start: 20130514
  2. NOROXINE [Suspect]
     Indication: URINARY TRACT INFECTION
     Dosage: COATED TABLET
     Route: 048
     Dates: start: 20130513, end: 20130514
  3. CIPROFLOXACIN [Suspect]
     Indication: URINARY TRACT INFECTION
     Route: 042
     Dates: start: 20130514

REACTIONS (1)
  - Rhabdomyolysis [Recovered/Resolved]
